FAERS Safety Report 9562908 (Version 2)
Quarter: 2013Q3

REPORT INFORMATION
  Report Type: Report from Study
  Country: US (occurrence: US)
  Receive Date: 20130927
  Receipt Date: 20130927
  Transmission Date: 20140515
  Serious: Yes (Death, Hospitalization, Other)
  Sender: FDA-Public Use
  Company Number: US-ACTELION-A-US2013-85805

PATIENT
  Age: 87 Year
  Sex: Female

DRUGS (8)
  1. TRACLEER [Suspect]
     Indication: PULMONARY ARTERIAL HYPERTENSION
     Dosage: 125 MG, BID
     Route: 048
     Dates: start: 2003
  2. SILDENAFIL [Concomitant]
  3. FUROSEMIDE [Concomitant]
     Dosage: 80 MG, BID
  4. POTASSIUM [Concomitant]
     Dosage: 20 MEQ, TID
  5. VYTORIN [Concomitant]
     Dosage: UNK
  6. NIFEDIPINE [Concomitant]
     Dosage: UNK
  7. LEVOTHYROXINE [Concomitant]
  8. PLAVIX [Concomitant]
     Dosage: UNK

REACTIONS (5)
  - Death [Fatal]
  - Cerebrovascular accident [Not Recovered/Not Resolved]
  - Memory impairment [Not Recovered/Not Resolved]
  - Fall [Recovered/Resolved]
  - Contusion [Recovering/Resolving]
